FAERS Safety Report 6207600-7 (Version None)
Quarter: 2009Q2

REPORT INFORMATION
  Report Type: 
  Country: None (occurrence: None)
  Receive Date: 20090526
  Receipt Date: 20090512
  Transmission Date: 20091009
  Serious: Yes (Life-Threatening, Hospitalization, Other)
  Sender: FDA-Public Use
  Company Number: 2009AP001833

PATIENT
  Age: 44 Year
  Sex: Female

DRUGS (12)
  1. SOTALOL HCL [Suspect]
     Indication: SUPRAVENTRICULAR TACHYCARDIA
     Dosage: 80 MG;BID
  2. AMIODARONE HCL [Suspect]
     Indication: VENTRICULAR FIBRILLATION
     Dosage: 300 MG
  3. ISOFLURANE [Suspect]
     Indication: ANAESTHESIA
  4. ALFACALCIDOL (ALFACALCIDOL) [Concomitant]
  5. ASPIRIN [Concomitant]
  6. DOMPERIDONE (DOMPERIDONE) [Concomitant]
  7. DOXAZOSIN MESYLATE [Concomitant]
  8. FUROSEMIDE [Concomitant]
  9. NITROFURANTOIN [Concomitant]
  10. RABEPRAZOLE SODIUM [Concomitant]
  11. SIMVASTATIN [Concomitant]
  12. SODIUM BICARBONATE IN PLASTIC CONTAINER [Concomitant]

REACTIONS (16)
  - ARTERIOVENOUS FISTULA SITE COMPLICATION [None]
  - BRADYCARDIA [None]
  - CATHETER RELATED COMPLICATION [None]
  - DRUG LEVEL ABOVE THERAPEUTIC [None]
  - DRUG TOXICITY [None]
  - ELECTROCARDIOGRAM QT PROLONGED [None]
  - HAEMODIALYSIS [None]
  - HYPERTENSION [None]
  - HYPOKALAEMIA [None]
  - HYPOTENSION [None]
  - PALPITATIONS [None]
  - TACHYARRHYTHMIA [None]
  - TRANSPLANT FAILURE [None]
  - VENTRICULAR ARRHYTHMIA [None]
  - VENTRICULAR EXTRASYSTOLES [None]
  - VENTRICULAR FIBRILLATION [None]
